FAERS Safety Report 9912111 (Version 2)
Quarter: 2014Q2

REPORT INFORMATION
  Report Type: Report from Study
  Country: CA (occurrence: CA)
  Receive Date: 20140219
  Receipt Date: 20140611
  Transmission Date: 20141212
  Serious: Yes (Death)
  Sender: FDA-Public Use
  Company Number: CA-BRISTOL-MYERS SQUIBB COMPANY-20195285

PATIENT
  Age: 65 Year
  Sex: Female

DRUGS (5)
  1. ORENCIA [Suspect]
     Indication: RHEUMATOID ARTHRITIS
     Dosage: 1DF: 1000 UNIT:NOS
     Dates: start: 20121122, end: 20131029
  2. MELOXICAM [Concomitant]
  3. EZETROL [Concomitant]
  4. DILAUDID [Concomitant]
  5. TYLENOL [Concomitant]

REACTIONS (1)
  - Death [Fatal]
